FAERS Safety Report 6946413-5 (Version None)
Quarter: 2010Q3

REPORT INFORMATION
  Report Type: 
  Country: None (occurrence: None)
  Receive Date: 20100827
  Receipt Date: 20100816
  Transmission Date: 20110219
  Serious: Yes (Hospitalization)
  Sender: FDA-Public Use
  Company Number: US-ELI_LILLY_AND_COMPANY-US201008006631

PATIENT
  Sex: Female

DRUGS (22)
  1. FORTEO [Suspect]
     Indication: OSTEOPOROSIS
     Dosage: 20 UG, DAILY (1/D)
     Route: 058
  2. FORTEO [Suspect]
     Dosage: 20 UG, DAILY (1/D)
     Dates: start: 20100721
  3. ALLEGRA [Concomitant]
  4. ASPIRIN [Concomitant]
  5. BENICAR [Concomitant]
  6. CALCIUM [Concomitant]
  7. VITAMIN D [Concomitant]
  8. CARDIZEM [Concomitant]
  9. COUMADIN [Concomitant]
  10. CRESTOR [Concomitant]
  11. CYMBALTA [Concomitant]
  12. DIGOXIN [Concomitant]
  13. FUROSEMIDE [Concomitant]
  14. LEVEMIR [Concomitant]
  15. MOBIC [Concomitant]
  16. NEXIUM [Concomitant]
  17. SINGULAIR [Concomitant]
  18. SYMBICORT [Concomitant]
  19. SYNTHROID [Concomitant]
  20. ALBUTEROL [Concomitant]
     Dosage: UNK, 2 - 3/D
  21. PREDNISONE [Concomitant]
     Indication: ASTHMA
  22. XOLAIR [Concomitant]
     Indication: HYPERSENSITIVITY
     Dosage: UNK, MONTHLY (1/M)

REACTIONS (3)
  - ABDOMINAL PAIN [None]
  - ARTERIAL OCCLUSIVE DISEASE [None]
  - ASTHENIA [None]
